FAERS Safety Report 17395822 (Version 1)
Quarter: 2020Q1

REPORT INFORMATION
  Report Type: Report from Study
  Country: US (occurrence: US)
  Receive Date: 20200210
  Receipt Date: 20200210
  Transmission Date: 20200409
  Serious: No
  Sender: FDA-Public Use
  Company Number: US-KYOWAKIRIN-2020BKK001178

PATIENT

DRUGS (2)
  1. NOURIANZ [Suspect]
     Active Substance: ISTRADEFYLLINE
     Dosage: 40 MG, DAILY
     Route: 048
     Dates: start: 202001
  2. NOURIANZ [Suspect]
     Active Substance: ISTRADEFYLLINE
     Indication: PARKINSON^S DISEASE
     Dosage: 20 MG DAILY
     Route: 048
     Dates: start: 20200111, end: 202001

REACTIONS (1)
  - Dizziness [Not Recovered/Not Resolved]

NARRATIVE: CASE EVENT DATE: 202001
